FAERS Safety Report 9016157 (Version 1)
Quarter: 2013Q1

REPORT INFORMATION
  Report Type: Spontaneous
  Country: US (occurrence: US)
  Receive Date: 20130116
  Receipt Date: 20130116
  Transmission Date: 20140127
  Serious: Yes (Hospitalization, Other)
  Sender: FDA-Public Use
  Company Number: US-009507513-2009-196598-NL

PATIENT
  Sex: 0

DRUGS (3)
  1. NUVARING [Suspect]
     Indication: CONTRACEPTION
     Dosage: 1 DF, QM
     Route: 067
     Dates: start: 200702, end: 200705
  2. NUVARING [Suspect]
     Indication: OVARIAN CYST
  3. IBUPROFEN [Concomitant]
     Indication: DYSMENORRHOEA
     Dosage: 600 MG, ONCE

REACTIONS (6)
  - Deep vein thrombosis [Unknown]
  - Pulmonary embolism [Recovered/Resolved]
  - Hepatic cyst [Unknown]
  - Off label use [Recovered/Resolved]
  - Nausea [Unknown]
  - Deep vein thrombosis [Not Recovered/Not Resolved]
